FAERS Safety Report 4594979-5 (Version None)
Quarter: 2005Q1

REPORT INFORMATION
  Report Type: 
  Country: None (occurrence: None)
  Receive Date: 20050225
  Receipt Date: 20050208
  Transmission Date: 20050727
  Serious: Yes (Hospitalization, Other)
  Sender: FDA-Public Use
  Company Number: 206828

PATIENT
  Age: 46 Year
  Sex: Female

DRUGS (4)
  1. AVONEX [Suspect]
     Indication: MULTIPLE SCLEROSIS
     Dosage: 30 UG; QW; IM
     Route: 030
     Dates: start: 20040901, end: 20050121
  2. DESOGEN [Concomitant]
  3. LIPITOR [Concomitant]
  4. BIRTH CONTROL PILLS (NOS) [Concomitant]

REACTIONS (5)
  - CARDIAC ARREST [None]
  - DISEASE RECURRENCE [None]
  - GRAND MAL CONVULSION [None]
  - RESPIRATORY ARREST [None]
  - SINUS TACHYCARDIA [None]
